FAERS Safety Report 9319653 (Version 8)
Quarter: 2013Q4

REPORT INFORMATION
  Report Type: Spontaneous
  Country: US (occurrence: US)
  Receive Date: 20130530
  Receipt Date: 20131122
  Transmission Date: 20140711
  Serious: Yes (Death, Life-Threatening, Hospitalization)
  Sender: FDA-Public Use
  Company Number: US-GLAXOSMITHKLINE-A1019349A

PATIENT
  Age: 56 Year
  Sex: Female
  Weight: 55 kg

DRUGS (3)
  1. FLOLAN [Suspect]
     Indication: COR PULMONALE CHRONIC
     Dosage: 29NGK CONTINUOUS
     Route: 042
     Dates: start: 20130209
  2. ADCIRCA [Concomitant]
  3. WARFARIN [Concomitant]

REACTIONS (13)
  - Clostridium difficile infection [Recovered/Resolved]
  - Productive cough [Recovered/Resolved]
  - Dyspnoea [Unknown]
  - Dizziness [Recovered/Resolved]
  - Drug administration error [Recovered/Resolved]
  - Headache [Recovered/Resolved]
  - Chest discomfort [Recovered/Resolved]
  - Localised oedema [Recovered/Resolved]
  - Large intestinal obstruction [Unknown]
  - Constipation [Unknown]
  - Heart rate increased [Unknown]
  - Hypotension [Fatal]
  - Infection [Unknown]
